FAERS Safety Report 4330885-9 (Version None)
Quarter: 2004Q1

REPORT INFORMATION
  Report Type: 
  Country: None (occurrence: None)
  Receive Date: 20040331
  Receipt Date: 20040317
  Transmission Date: 20041129
  Serious: Yes (Other)
  Sender: FDA-Public Use
  Company Number: S04-USA-01552-01

PATIENT

DRUGS (2)
  1. LEXAPRO [Suspect]
  2. LAMICTAL [Concomitant]

REACTIONS (1)
  - CONVULSION [None]
